FAERS Safety Report 4289122-6 (Version None)
Quarter: 2004Q1

REPORT INFORMATION
  Report Type: 
  Country: None (occurrence: None)
  Receive Date: 20040205
  Receipt Date: 20040128
  Transmission Date: 20041129
  Serious: Yes (Hospitalization, Other)
  Sender: FDA-Public Use
  Company Number: A0495389A

PATIENT
  Age: 61 Year
  Sex: Male

DRUGS (4)
  1. COMMIT [Suspect]
     Indication: EX-SMOKER
     Dosage: 4 MG TWICE PER DAY TRANSBUCCAL
     Route: 002
     Dates: start: 20030101
  2. ASPIRIN [Concomitant]
  3. CARVEDILOL [Concomitant]
  4. PIOGLITAZONE HCL [Concomitant]

REACTIONS (8)
  - BLOOD GLUCOSE INCREASED [None]
  - BRONCHITIS [None]
  - COUGH [None]
  - DIZZINESS [None]
  - DYSPNOEA [None]
  - PNEUMONIA [None]
  - RESPIRATORY TRACT CONGESTION [None]
  - WHEEZING [None]
